FAERS Safety Report 6526306-8 (Version None)
Quarter: 2009Q4

REPORT INFORMATION
  Report Type: 
  Country: None (occurrence: None)
  Receive Date: 20091224
  Receipt Date: 20091216
  Transmission Date: 20100525
  Serious: Yes (Hospitalization)
  Sender: FDA-Public Use
  Company Number: 459518

PATIENT
  Age: 15 Year
  Sex: Male

DRUGS (7)
  1. FENTANYL-100 [Suspect]
     Indication: PREMEDICATION
     Dosage: INTRAVENOUS
     Route: 042
     Dates: start: 20091111, end: 20091111
  2. PROPOFOL [Suspect]
     Indication: INDUCTION OF ANAESTHESIA
     Dosage: INTRAVENOUS
     Route: 042
     Dates: start: 20091111, end: 20091111
  3. VANCOMYCIN [Suspect]
     Indication: ENDOCARDITIS PROPHYLAXIS
     Dosage: INTRAVENOUS
     Route: 042
     Dates: start: 20091111, end: 20091111
  4. (REMIFENTANIL) [Suspect]
     Indication: INDUCTION OF ANAESTHESIA
     Dosage: INTRAVENOUS
     Route: 042
     Dates: start: 20091111, end: 20091111
  5. MIDAZOLAM HCL [Concomitant]
  6. VILOXAZINE HCL [Concomitant]
  7. ATROPINE [Concomitant]

REACTIONS (5)
  - DRUG HYPERSENSITIVITY [None]
  - DRUG INTERACTION [None]
  - HYPOTENSION [None]
  - INFUSION RELATED REACTION [None]
  - RED MAN SYNDROME [None]
